FAERS Safety Report 12585707 (Version 1)
Quarter: 2016Q3

REPORT INFORMATION
  Report Type: Spontaneous
  Country: DE (occurrence: DE)
  Receive Date: 20160725
  Receipt Date: 20160725
  Transmission Date: 20161109
  Serious: Yes (Other)
  Sender: FDA-Public Use
  Company Number: DE-CIPLA LTD.-2016DE09992

PATIENT

DRUGS (6)
  1. CARBOPLATIN. [Suspect]
     Active Substance: CARBOPLATIN
     Dosage: 753 MG/TG.
     Route: 042
     Dates: start: 20151215
  2. CARBOPLATIN. [Suspect]
     Active Substance: CARBOPLATIN
     Indication: PRODUCT USED FOR UNKNOWN INDICATION
     Dosage: UNK
     Route: 042
     Dates: start: 20151124
  3. BEVACIZUMAB [Concomitant]
     Active Substance: BEVACIZUMAB
     Indication: CHEMOTHERAPY
     Dosage: UNK
     Route: 065
  4. GLUCOSE [Concomitant]
     Active Substance: DEXTROSE
     Dosage: UNK
     Route: 042
  5. GEMCITABINE [Concomitant]
     Active Substance: GEMCITABINE\GEMCITABINE HYDROCHLORIDE
     Indication: CHEMOTHERAPY
     Dosage: UNK
     Route: 065
  6. CARBOPLATIN. [Suspect]
     Active Substance: CARBOPLATIN
     Dosage: 643 MG/TG.
     Route: 042

REACTIONS (4)
  - Chest discomfort [Unknown]
  - Erythema [Unknown]
  - Adverse event [Unknown]
  - Hypersensitivity [Unknown]
